FAERS Safety Report 24395093 (Version 1)
Quarter: 2024Q4

REPORT INFORMATION
  Report Type: Spontaneous
  Country: US (occurrence: US)
  Receive Date: 20241004
  Receipt Date: 20241004
  Transmission Date: 20250115
  Serious: Yes (Other)
  Sender: AUROBINDO
  Company Number: US-AUROBINDO-AUR-APL-2024-047404

PATIENT
  Age: 56 Year
  Sex: Female

DRUGS (4)
  1. CARBOPLATIN [Suspect]
     Active Substance: CARBOPLATIN
     Indication: Ovarian cancer
     Dosage: UNK, SIX CYCLES
     Route: 065
  2. BEVACIZUMAB [Suspect]
     Active Substance: BEVACIZUMAB
     Indication: Ovarian cancer
     Dosage: UNK, SIX CYCLES
     Route: 065
  3. DOXORUBICIN HYDROCHLORIDE [Suspect]
     Active Substance: DOXORUBICIN HYDROCHLORIDE
     Indication: Ovarian cancer
     Dosage: UNK, SIX CYCLES
     Route: 065
  4. MIRVETUXIMAB SORAVTANSINE [Concomitant]
     Active Substance: MIRVETUXIMAB SORAVTANSINE
     Indication: Product used for unknown indication
     Dosage: 6 MILLIGRAM/KILOGRAM IN EVERY 21 DAYS
     Route: 065

REACTIONS (1)
  - Drug ineffective [Unknown]
